FAERS Safety Report 12949656 (Version 1)
Quarter: 2016Q4

REPORT INFORMATION
  Report Type: Spontaneous
  Country: US (occurrence: US)
  Receive Date: 20161116
  Receipt Date: 20161116
  Transmission Date: 20170207
  Serious: Yes (Hospitalization)
  Sender: FDA-Public Use
  Company Number: None

PATIENT
  Age: 77 Year
  Sex: Female

DRUGS (1)
  1. IBRANCE [Suspect]
     Active Substance: PALBOCICLIB
     Indication: NEOPLASM MALIGNANT
     Dosage: 1 CAP QD, CYCLE PO
     Route: 048
     Dates: start: 20160430

REACTIONS (2)
  - Pneumonia [None]
  - Drug dose omission [None]

NARRATIVE: CASE EVENT DATE: 201609
